FAERS Safety Report 8559288-8 (Version None)
Quarter: 2012Q3

REPORT INFORMATION
  Report Type: 
  Country: None (occurrence: None)
  Receive Date: 20120802
  Receipt Date: 20120730
  Transmission Date: 20120928
  Serious: Yes (Other)
  Sender: FDA-Public Use
  Company Number: PHEH2012US012030

PATIENT
  Sex: Male

DRUGS (1)
  1. AREDIA [Suspect]
     Indication: MULTIPLE MYELOMA
     Dosage: 90 MG, QMO
     Route: 042
     Dates: start: 19981125, end: 20081001

REACTIONS (13)
  - AGRANULOCYTOSIS [None]
  - DYSPEPSIA [None]
  - ALOPECIA [None]
  - MUCOSAL INFLAMMATION [None]
  - THROMBOCYTOPENIA [None]
  - DEEP VEIN THROMBOSIS [None]
  - STOMATITIS [None]
  - OROPHARYNGEAL CANDIDIASIS [None]
  - OEDEMA [None]
  - OROPHARYNGEAL PAIN [None]
  - ANAEMIA [None]
  - OEDEMA PERIPHERAL [None]
  - ATELECTASIS [None]
